FAERS Safety Report 11714930 (Version 1)
Quarter: 2015Q4

REPORT INFORMATION
  Report Type: Spontaneous
  Country: JP (occurrence: JP)
  Receive Date: 20151109
  Receipt Date: 20151109
  Transmission Date: 20160304
  Serious: Yes (Hospitalization, Other)
  Sender: FDA-Public Use
  Company Number: JP-MYLANLABS-2015M1012489

PATIENT

DRUGS (17)
  1. CARBOPLATIN INJECTION 50 MG ^NK^ [Suspect]
     Active Substance: CARBOPLATIN
     Dosage: 540MG, CYCLE8
     Route: 041
  2. DEXART [Concomitant]
     Active Substance: DEXAMETHASONE SODIUM PHOSPHATE
     Indication: PROPHYLAXIS OF NAUSEA AND VOMITING
     Dosage: 3.3 MG, QD
     Route: 041
     Dates: start: 20140912, end: 20150220
  3. CARBOPLATIN INJECTION 50 MG ^NK^ [Suspect]
     Active Substance: CARBOPLATIN
     Dosage: 555MG, CYCLE3
     Route: 041
  4. CARBOPLATIN INJECTION 50 MG ^NK^ [Suspect]
     Active Substance: CARBOPLATIN
     Indication: OVARIAN CANCER STAGE III
     Dosage: 535 MG, CYCLE1
     Route: 041
     Dates: start: 20140912
  5. CARBOPLATIN INJECTION 50 MG ^NK^ [Suspect]
     Active Substance: CARBOPLATIN
     Dosage: 590MG, CYCLE4
     Route: 041
  6. ALOXI [Concomitant]
     Active Substance: PALONOSETRON HYDROCHLORIDE
     Indication: PROPHYLAXIS OF NAUSEA AND VOMITING
     Dosage: 0.75 MG, QD
     Route: 041
     Dates: start: 20140912, end: 20150220
  7. TERPERAN [Concomitant]
     Active Substance: METOCLOPRAMIDE HYDROCHLORIDE
     Indication: PROPHYLAXIS OF NAUSEA AND VOMITING
     Dosage: 10 MG, QD
     Route: 041
     Dates: start: 20141010, end: 20141010
  8. CARBOPLATIN INJECTION 50 MG ^NK^ [Suspect]
     Active Substance: CARBOPLATIN
     Dosage: ??
     Route: 041
     Dates: start: 20150424, end: 20150626
  9. TAXOTERE [Suspect]
     Active Substance: DOCETAXEL
     Dosage: ??
     Dates: start: 20150424, end: 20150626
  10. CARBOPLATIN INJECTION 50 MG ^NK^ [Suspect]
     Active Substance: CARBOPLATIN
     Dosage: 555MG, CYCLE6
     Route: 041
  11. PROEMEND [Concomitant]
     Active Substance: FOSAPREPITANT
     Indication: PROPHYLAXIS OF NAUSEA AND VOMITING
     Dosage: 150 MG, QD
     Route: 041
     Dates: start: 20141024, end: 20141219
  12. CARBOPLATIN INJECTION 50 MG ^NK^ [Suspect]
     Active Substance: CARBOPLATIN
     Dosage: 565 MG, CYCLE2
     Route: 041
  13. CARBOPLATIN INJECTION 50 MG ^NK^ [Suspect]
     Active Substance: CARBOPLATIN
     Dosage: 560MG, CYCLE5
     Route: 041
  14. CARBOPLATIN INJECTION 50 MG ^NK^ [Suspect]
     Active Substance: CARBOPLATIN
     Dosage: 520MG, CYCLE7
     Route: 041
  15. PACLITAXEL. [Suspect]
     Active Substance: PACLITAXEL
     Indication: OVARIAN CANCER STAGE III
     Dosage: 105 MG, QD
     Route: 041
     Dates: start: 20140912, end: 20141219
  16. TAXOTERE [Suspect]
     Active Substance: DOCETAXEL
     Indication: OVARIAN CANCER STAGE III
     Dosage: 90 MG, UNK
     Route: 041
     Dates: start: 20150109, end: 20150220
  17. ZANTAC [Concomitant]
     Active Substance: RANITIDINE HYDROCHLORIDE
     Indication: PROPHYLAXIS OF NAUSEA AND VOMITING
     Dosage: 50 MG, QD
     Route: 041
     Dates: start: 20140912, end: 20141219

REACTIONS (4)
  - Deafness neurosensory [Recovering/Resolving]
  - Adjustment disorder [Recovering/Resolving]
  - Anxiety disorder [Recovering/Resolving]
  - Hypoaesthesia [Not Recovered/Not Resolved]

NARRATIVE: CASE EVENT DATE: 20141128
